FAERS Safety Report 7027052-7 (Version None)
Quarter: 2010Q3

REPORT INFORMATION
  Report Type: 
  Country: None (occurrence: None)
  Receive Date: 20100929
  Receipt Date: 20100920
  Transmission Date: 20110219
  Serious: Yes (Disabling, Other)
  Sender: FDA-Public Use
  Company Number: 2010MA002884

PATIENT
  Age: 76 Year
  Sex: Male

DRUGS (1)
  1. CLINDAMYCIN PHOSPHATE [Suspect]
     Indication: ANTIBIOTIC PROPHYLAXIS
     Dosage: 300 MG;TID;PO
     Route: 048

REACTIONS (7)
  - DRUG HYPERSENSITIVITY [None]
  - DRY GANGRENE [None]
  - FOOT AMPUTATION [None]
  - LEG AMPUTATION [None]
  - OSTEOMYELITIS [None]
  - VASCULITIS NECROTISING [None]
  - WOUND NECROSIS [None]
